FAERS Safety Report 5234419-6 (Version None)
Quarter: 2007Q1

REPORT INFORMATION
  Report Type: 
  Country: None (occurrence: None)
  Receive Date: 20070208
  Receipt Date: 20070208
  Transmission Date: 20070707
  Serious: Yes (Hospitalization)
  Sender: FDA-Public Use
  Company Number: None

PATIENT
  Age: 43 Year
  Sex: Female
  Weight: 73.9363 kg

DRUGS (1)
  1. ORTHO EVRA [Suspect]
     Indication: CONTRACEPTION
     Dosage: 1 PATCH WEEKLY CUTANEOUS
     Route: 003
     Dates: start: 20030601, end: 20050601

REACTIONS (7)
  - ABDOMINAL INJURY [None]
  - CEREBELLAR INFARCTION [None]
  - LARGE INTESTINE PERFORATION [None]
  - PERITONITIS [None]
  - ROAD TRAFFIC ACCIDENT [None]
  - TRAUMATIC BRAIN INJURY [None]
  - VASCULAR INJURY [None]
